FAERS Safety Report 9839130 (Version 2)
Quarter: 2014Q3

REPORT INFORMATION
  Report Type: Spontaneous
  Country: US (occurrence: US)
  Receive Date: 20140123
  Receipt Date: 20140811
  Transmission Date: 20150326
  Serious: No
  Sender: FDA-Public Use
  Company Number: US-009507513-1401USA010114

PATIENT
  Sex: Female
  Weight: 67.12 kg

DRUGS (2)
  1. CENTRUM (MINERALS (UNSPECIFIED) (+) VITAMINS (UNSPECIFIED)) [Concomitant]
     Dosage: 1 DF, QD
  2. NUVARING [Suspect]
     Active Substance: ETHINYL ESTRADIOL\ETONOGESTREL
     Indication: CONTRACEPTION
     Dosage: 0.015-0.120 MG, INSERT 1 RING
     Route: 067
     Dates: start: 20111222

REACTIONS (3)
  - Plantar fasciitis [Unknown]
  - Deep vein thrombosis [Unknown]
  - Anxiety [Recovering/Resolving]

NARRATIVE: CASE EVENT DATE: 20120628
